FAERS Safety Report 14239041 (Version 1)
Quarter: 2017Q4

REPORT INFORMATION
  Report Type: Spontaneous
  Country: US (occurrence: US)
  Receive Date: 20171127
  Receipt Date: 20171127
  Transmission Date: 20180321
  Serious: No
  Sender: FDA-Public Use
  Company Number: None

PATIENT
  Age: 64 Year
  Sex: Female
  Weight: 56.25 kg

DRUGS (7)
  1. VIT B COMPLEX [Concomitant]
  2. FISH OIL [Concomitant]
     Active Substance: FISH OIL
  3. MAGNESIUM [Concomitant]
     Active Substance: MAGNESIUM
  4. CALCIUM [Concomitant]
     Active Substance: CALCIUM
  5. RALOXIFENE. [Suspect]
     Active Substance: RALOXIFENE
     Indication: PROPHYLAXIS
     Dosage: ?          QUANTITY:1 TABLET(S);?
     Route: 048
     Dates: start: 20161015
  6. RALOXIFENE. [Suspect]
     Active Substance: RALOXIFENE
     Indication: BREAST CANCER
     Dosage: ?          QUANTITY:1 TABLET(S);?
     Route: 048
     Dates: start: 20161015
  7. VITAMIN D3 [Concomitant]
     Active Substance: CHOLECALCIFEROL

REACTIONS (5)
  - Raynaud^s phenomenon [None]
  - Insomnia [None]
  - Muscle spasms [None]
  - Pain in extremity [None]
  - Magnesium deficiency [None]

NARRATIVE: CASE EVENT DATE: 20170101
